FAERS Safety Report 25993412 (Version 1)
Quarter: 2025Q4

REPORT INFORMATION
  Report Type: Spontaneous
  Country: US (occurrence: US)
  Receive Date: 20251104
  Receipt Date: 20251104
  Transmission Date: 20260117
  Serious: No
  Sender: DAIICHI
  Company Number: US-DSJP-DS-2025-172308-US

PATIENT
  Sex: Female

DRUGS (1)
  1. DATROWAY [Suspect]
     Active Substance: DATOPOTAMAB DERUXTECAN-DLNK
     Indication: Breast cancer
     Dosage: UNK
     Route: 042

REACTIONS (1)
  - Infusion related reaction [Recovered/Resolved]
